FAERS Safety Report 7810360-7 (Version None)
Quarter: 2011Q4

REPORT INFORMATION
  Report Type: 
  Country: None (occurrence: None)
  Receive Date: 20111012
  Receipt Date: 20111004
  Transmission Date: 20120403
  Serious: Yes (Other)
  Sender: FDA-Public Use
  Company Number: US-ASTRAZENECA-2010SE54049

PATIENT
  Age: 807 Month
  Sex: Male
  Weight: 86.2 kg

DRUGS (20)
  1. SEROQUEL XR [Suspect]
     Indication: DEPRESSION
     Route: 048
  2. SEROQUEL XR [Suspect]
     Route: 048
     Dates: start: 20100501, end: 20101101
  3. SEROQUEL XR [Suspect]
     Route: 048
     Dates: start: 20100501, end: 20101101
  4. SEROQUEL XR [Suspect]
     Route: 048
     Dates: start: 20100901
  5. CLONIDINE [Concomitant]
  6. SEROQUEL XR [Suspect]
     Indication: MOOD SWINGS
     Route: 048
  7. ZETIA [Concomitant]
  8. SEROQUEL XR [Suspect]
     Indication: SUICIDAL IDEATION
     Route: 048
  9. SEROQUEL XR [Suspect]
     Route: 048
     Dates: start: 20100901
  10. METFORMIN HYDROCHLORIDE [Concomitant]
  11. GLYCOSIDE [Concomitant]
  12. DILTIAZEM HCL [Concomitant]
  13. SEROQUEL XR [Suspect]
     Route: 048
     Dates: start: 20100501, end: 20101101
  14. LISINOPRIL [Concomitant]
  15. ASPIRIN [Concomitant]
  16. SIMVASTATIN [Concomitant]
  17. SERTRALINE HYDROCHLORIDE [Concomitant]
  18. NEXIUM [Suspect]
     Route: 048
  19. SEROQUEL XR [Suspect]
     Route: 048
     Dates: start: 20100901
  20. ZOLPIDEM [Concomitant]

REACTIONS (14)
  - DEPRESSED MOOD [None]
  - SOCIAL AVOIDANT BEHAVIOUR [None]
  - DRUG DOSE OMISSION [None]
  - TREMOR [None]
  - DECREASED INTEREST [None]
  - HYPERHIDROSIS [None]
  - FEELINGS OF WORTHLESSNESS [None]
  - ANXIETY [None]
  - NAUSEA [None]
  - DIZZINESS [None]
  - SUICIDAL IDEATION [None]
  - INFLUENZA [None]
  - MALAISE [None]
  - INSOMNIA [None]
